FAERS Safety Report 18480289 (Version 2)
Quarter: 2020Q4

REPORT INFORMATION
  Report Type: Spontaneous
  Country: DK (occurrence: DK)
  Receive Date: 20201109
  Receipt Date: 20201118
  Transmission Date: 20210114
  Serious: Yes (Death, Hospitalization)
  Sender: FDA-Public Use
  Company Number: DK-CELGENEUS-DNK-20201101218

PATIENT
  Age: 73 Year
  Sex: Female
  Weight: 73 kg

DRUGS (3)
  1. FURIX [Concomitant]
     Indication: DIURETIC THERAPY
     Dosage: 40 MILLIGRAM
     Route: 048
     Dates: end: 20201024
  2. ENASIDENIB [Suspect]
     Active Substance: ENASIDENIB
     Indication: ACUTE MYELOID LEUKAEMIA
     Dosage: 100 MILLIGRAM
     Route: 048
     Dates: start: 20200916, end: 20201024
  3. HABITUAL ALLOPURINOL [Concomitant]
     Indication: BLOOD URIC ACID INCREASED
     Dosage: 200 MILLIGRAM
     Route: 048
     Dates: end: 20201024

REACTIONS (3)
  - Central nervous system fungal infection [Fatal]
  - Escherichia sepsis [Recovered/Resolved]
  - Pneumonia fungal [Fatal]

NARRATIVE: CASE EVENT DATE: 202010
